FAERS Safety Report 9397886 (Version 2)
Quarter: 2013Q3

REPORT INFORMATION
  Report Type: Spontaneous
  Country: CO (occurrence: CO)
  Receive Date: 20130712
  Receipt Date: 20130718
  Transmission Date: 20140515
  Serious: Yes (Hospitalization, Other)
  Sender: FDA-Public Use
  Company Number: CO-PFIZER INC-2013202379

PATIENT
  Age: 18 Year
  Sex: Female

DRUGS (6)
  1. GENOTROPIN [Suspect]
     Indication: GROWTH HORMONE DEFICIENCY
     Dosage: 2 MG, 1X/DAY
     Route: 058
     Dates: start: 1997
  2. LEVOTHYROXINE [Concomitant]
     Indication: THYROID DISORDER
     Dosage: 200 UG, 1X/DAY
     Route: 048
     Dates: start: 2003
  3. PREDNISOLONE [Concomitant]
     Indication: METABOLIC DISORDER
     Dosage: 5 MG, 1X/DAY
     Route: 048
     Dates: start: 2003
  4. BIO CALCIUM [Concomitant]
     Indication: OSTEOCALCIN INCREASED
     Dosage: UNK
     Dates: start: 2005
  5. SCOTT^S EMULSION [Concomitant]
     Indication: NUTRITIONAL SUPPLEMENTATION
     Dosage: UNK
     Route: 048
     Dates: start: 2005
  6. ENSURE [Concomitant]
     Indication: NUTRITIONAL SUPPLEMENTATION
     Dosage: UNK
     Route: 048
     Dates: start: 2005

REACTIONS (6)
  - Vomiting [Recovered/Resolved]
  - Diarrhoea [Recovered/Resolved]
  - Blood sodium decreased [Recovered/Resolved]
  - Gastroenteritis [Recovered/Resolved]
  - Blood glucose decreased [Recovered/Resolved]
  - Syncope [Unknown]
